FAERS Safety Report 23756776 (Version 1)
Quarter: 2024Q2

REPORT INFORMATION
  Report Type: Spontaneous
  Country: FR (occurrence: FR)
  Receive Date: 20240418
  Receipt Date: 20240418
  Transmission Date: 20240716
  Serious: Yes (Other)
  Sender: FDA-Public Use
  Company Number: FR-JNJFOC-20240440748

PATIENT
  Age: 5 Decade
  Sex: Female

DRUGS (9)
  1. HALOPERIDOL DECANOATE [Suspect]
     Active Substance: HALOPERIDOL DECANOATE
     Indication: Schizophrenia
     Dosage: 50 MG/ML
     Route: 030
     Dates: start: 202305, end: 20240312
  2. HALOPERIDOL DECANOATE [Suspect]
     Active Substance: HALOPERIDOL DECANOATE
     Dosage: 4 INJECTABLE AMPOULES HALDOL?DECANOAS 50 MG/ML 1ML
     Route: 048
     Dates: start: 20240409
  3. ARTISIAL [Concomitant]
     Active Substance: CALCIUM CHLORIDE\MAGNESIUM CHLORIDE\POTASSIUM CHLORIDE\POTASSIUM PHOSPHATE, DIBASIC\POTASSIUM PHOSPH
  4. POLYETHYLENE GLYCOLS [Concomitant]
     Active Substance: POLYETHYLENE GLYCOLS
     Dosage: 2 SACHETS IN THE MORNING
  5. ANETHOLTRITHION [Concomitant]
     Active Substance: ANETHOLTRITHION
     Dosage: X2 IN THE MORNING/MIDDAY/EVENING)
  6. DOLIPRANE [Concomitant]
     Active Substance: ACETAMINOPHEN
     Dosage: 3/DAY IF NEEDED,)
  7. AKINETON [Concomitant]
     Active Substance: BIPERIDEN HYDROCHLORIDE
  8. LOXAPINE [Concomitant]
     Active Substance: LOXAPINE
     Dosage: 25 X1 MORNING AND MIDDAY AND X2 IN THE EVENING
  9. VALIUM [Concomitant]
     Active Substance: DIAZEPAM
     Dosage: 5MG X1 IN THE MORNING/MIDDAY/EVENING

REACTIONS (2)
  - Delirium [Unknown]
  - Off label use [Unknown]

NARRATIVE: CASE EVENT DATE: 20240409
